FAERS Safety Report 9578903 (Version 1)
Quarter: 2013Q4

REPORT INFORMATION
  Report Type: Spontaneous
  Country: US (occurrence: US)
  Receive Date: 20131001
  Receipt Date: 20131001
  Transmission Date: 20140711
  Serious: No
  Sender: FDA-Public Use
  Company Number: US-AMGEN-USASP2013015833

PATIENT
  Age: 51 Year
  Sex: Male

DRUGS (4)
  1. ENBREL [Suspect]
     Indication: PSORIATIC ARTHROPATHY
     Dosage: 50 MG, QWK
     Route: 058
     Dates: start: 201008
  2. TYLENOL                            /00020001/ [Concomitant]
     Dosage: UNK UNK, QD
  3. ALCOHOL [Concomitant]
     Dosage: UNK UNK, QD
  4. HYDROCODONE/APAP [Concomitant]
     Dosage: UNK UNK, QD

REACTIONS (1)
  - Hepatic enzyme increased [Unknown]
